FAERS Safety Report 7622277-1 (Version None)
Quarter: 2011Q3

REPORT INFORMATION
  Report Type: 
  Country: None (occurrence: None)
  Receive Date: 20110720
  Receipt Date: 20110418
  Transmission Date: 20111222
  Serious: Yes (Other)
  Sender: FDA-Public Use
  Company Number: US-BAYER-2011-033820

PATIENT
  Age: 33 Year
  Sex: Male

DRUGS (1)
  1. MAGNEVIST [Suspect]
     Indication: NUCLEAR MAGNETIC RESONANCE IMAGING BRAIN
     Dosage: 20 ML, ONCE
     Dates: start: 20110418, end: 20110418

REACTIONS (4)
  - MALAISE [None]
  - HYPERHIDROSIS [None]
  - CHEST DISCOMFORT [None]
  - DYSPNOEA [None]
